FAERS Safety Report 18626539 (Version 1)
Quarter: 2020Q4

REPORT INFORMATION
  Report Type: Report from Study
  Country: None (occurrence: US)
  Receive Date: 20201216
  Receipt Date: 20201216
  Transmission Date: 20210114
  Serious: Yes (Hospitalization)
  Sender: FDA-Public Use
  Company Number: US-ABBVIE-20K-163-3694856-00

PATIENT
  Sex: Female

DRUGS (1)
  1. VENCLEXTA [Suspect]
     Active Substance: VENETOCLAX
     Indication: MYELODYSPLASTIC SYNDROME
     Route: 048
     Dates: start: 20200330, end: 2020

REACTIONS (6)
  - Blood count abnormal [Unknown]
  - Urinary tract infection [Unknown]
  - Dyspnoea [Unknown]
  - Fatigue [Unknown]
  - Heart rate increased [Unknown]
  - Hypotension [Unknown]

NARRATIVE: CASE EVENT DATE: 2020
